FAERS Safety Report 9055710 (Version 1)
Quarter: 2013Q1

REPORT INFORMATION
  Report Type: Spontaneous
  Country: US (occurrence: US)
  Receive Date: 20130206
  Receipt Date: 20130206
  Transmission Date: 20140127
  Serious: Yes (Hospitalization, Other)
  Sender: FDA-Public Use
  Company Number: US-BAXTER-2013BAX003827

PATIENT
  Age: 76 None
  Sex: Female

DRUGS (1)
  1. DIANEAL LOW CALCIUM [Suspect]
     Indication: PERITONEAL DIALYSIS
     Route: 033

REACTIONS (7)
  - Blood potassium decreased [Recovering/Resolving]
  - Peritonitis bacterial [Not Recovered/Not Resolved]
  - Peritonitis [Not Recovered/Not Resolved]
  - Hypophagia [Unknown]
  - Peritoneal dialysis complication [Recovered/Resolved]
  - Muscle spasms [Recovered/Resolved]
  - Catheter site infection [Recovered/Resolved]
